FAERS Safety Report 6333093-5 (Version None)
Quarter: 2009Q3

REPORT INFORMATION
  Report Type: 
  Country: None (occurrence: None)
  Receive Date: 20090828
  Receipt Date: 20090821
  Transmission Date: 20100115
  Serious: Yes (Life-Threatening)
  Sender: FDA-Public Use
  Company Number: TR-JNJFOC-20090807177

PATIENT

DRUGS (3)
  1. REMICADE [Suspect]
     Indication: DRUG USE FOR UNKNOWN INDICATION
     Dosage: ^LONG TIME^ USE; STOPPED 1 YEAR AGO
     Route: 042
  2. HUMIRA [Suspect]
     Indication: DRUG USE FOR UNKNOWN INDICATION
  3. RAPTIVA [Suspect]
     Indication: DRUG USE FOR UNKNOWN INDICATION

REACTIONS (1)
  - COLON CANCER [None]
